FAERS Safety Report 8790210 (Version 1)
Quarter: 2012Q4

REPORT INFORMATION
  Report Type: 
  Country: US (occurrence: US)
  Receive Date: 20120917
  Receipt Date: 20120917
  Transmission Date: 20130627
  Serious: No
  Sender: FDA-Public Use
  Company Number: US-PFIZER INC-2012224546

PATIENT
  Age: 61 Year
  Sex: Female
  Weight: 63.49 kg

DRUGS (2)
  1. PRISTIQ [Suspect]
     Indication: ANXIETY
     Dosage: 50 mg, daily
     Route: 048
     Dates: start: 20120812
  2. PRISTIQ [Suspect]
     Indication: DEPRESSION

REACTIONS (9)
  - Off label use [Not Recovered/Not Resolved]
  - Pruritus [Not Recovered/Not Resolved]
  - Rash [Not Recovered/Not Resolved]
  - Hot flush [Unknown]
  - Diarrhoea [Unknown]
  - Constipation [Unknown]
  - Headache [Unknown]
  - Dry eye [Unknown]
  - Fatigue [Not Recovered/Not Resolved]
